FAERS Safety Report 11048603 (Version 3)
Quarter: 2015Q2

REPORT INFORMATION
  Report Type: Spontaneous
  Country: JP (occurrence: JP)
  Receive Date: 20150420
  Receipt Date: 20150501
  Transmission Date: 20150821
  Serious: Yes (Hospitalization, Other)
  Sender: FDA-Public Use
  Company Number: JP-GLAXOSMITHKLINE-JP2015JPN048677

PATIENT
  Age: 56 Year
  Sex: Female
  Weight: 51 kg

DRUGS (11)
  1. LAMICTAL [Suspect]
     Active Substance: LAMOTRIGINE
     Indication: EPILEPSY
     Dosage: 25 MG, QD
     Route: 048
     Dates: start: 20150326, end: 20150406
  2. LEVETIRACETAM. [Concomitant]
     Active Substance: LEVETIRACETAM
     Dosage: UNK
  3. PROGRAF [Concomitant]
     Active Substance: TACROLIMUS\TACROLIMUS ANHYDROUS
     Indication: RHEUMATOID ARTHRITIS
  4. PARIET [Concomitant]
     Active Substance: RABEPRAZOLE SODIUM
  5. PREDONINE [Concomitant]
     Active Substance: PREDNISOLONE\PREDNISOLONE ACETATE\PREDNISOLONE SODIUM SUCCINATE
     Indication: RHEUMATOID ARTHRITIS
  6. LOXOPROFEN [Concomitant]
     Active Substance: LOXOPROFEN
  7. MAGLAX [Concomitant]
     Active Substance: MAGNESIUM OXIDE
  8. LAXOBERON [Concomitant]
     Active Substance: SODIUM PICOSULFATE
  9. FEBURIC [Concomitant]
     Active Substance: FEBUXOSTAT
  10. RIMATIL [Concomitant]
     Active Substance: BUCILLAMINE
  11. HALCION [Concomitant]
     Active Substance: TRIAZOLAM

REACTIONS (6)
  - Erythema [Recovered/Resolved]
  - Rash [Unknown]
  - Diarrhoea [Recovering/Resolving]
  - Rash [Unknown]
  - Drug reaction with eosinophilia and systemic symptoms [Recovering/Resolving]
  - Pyrexia [Unknown]

NARRATIVE: CASE EVENT DATE: 20150404
